FAERS Safety Report 19312022 (Version 2)
Quarter: 2021Q2

REPORT INFORMATION
  Report Type: Spontaneous
  Country: BR (occurrence: BR)
  Receive Date: 20210527
  Receipt Date: 20210604
  Transmission Date: 20210717
  Serious: Yes (Hospitalization)
  Sender: FDA-Public Use
  Company Number: BR-UCBSA-2021024079

PATIENT
  Age: 64 Year
  Sex: Female
  Weight: 85 kg

DRUGS (1)
  1. CIMZIA [Suspect]
     Active Substance: CERTOLIZUMAB PEGOL
     Indication: RHEUMATOID ARTHRITIS
     Dosage: UNK
     Route: 058
     Dates: start: 2018

REACTIONS (4)
  - Immunisation [Unknown]
  - Therapy interrupted [Unknown]
  - Pulmonary thrombosis [Recovered/Resolved with Sequelae]
  - Vaccination complication [Recovered/Resolved]

NARRATIVE: CASE EVENT DATE: 20210316
